FAERS Safety Report 5135318-0 (Version None)
Quarter: 2006Q4

REPORT INFORMATION
  Report Type: 
  Country: None (occurrence: None)
  Receive Date: 20061024
  Receipt Date: 20061024
  Transmission Date: 20070319
  Serious: Yes (Hospitalization)
  Sender: FDA-Public Use
  Company Number: None

PATIENT
  Age: 64 Year
  Sex: Male
  Weight: 68 kg

DRUGS (8)
  1. TERAZOSIN HCL [Suspect]
     Indication: BENIGN PROSTATIC HYPERPLASIA
     Dosage: 10 MG QHS
     Dates: start: 20031201, end: 20060705
  2. TERAZOSIN HCL [Suspect]
     Indication: HYPERTENSION
     Dosage: 10 MG QHS
     Dates: start: 20031201, end: 20060705
  3. DIPHENHYDRAMINE HCL [Suspect]
     Indication: MULTIPLE ALLERGIES
     Dosage: 50 MG TID
     Dates: start: 20030201, end: 20060705
  4. SIMVASTATIN [Concomitant]
  5. OMEPRAZOLE [Concomitant]
  6. IRON POLYSACCHARIDE COMPLEX [Concomitant]
  7. DIPHENHYDRAMINE HCL [Concomitant]
  8. TERAZOSIN HCL [Concomitant]

REACTIONS (1)
  - SYNCOPE [None]
